FAERS Safety Report 16039751 (Version 1)
Quarter: 2019Q1

REPORT INFORMATION
  Report Type: Report from Study
  Country: NL (occurrence: NL)
  Receive Date: 20190306
  Receipt Date: 20190306
  Transmission Date: 20190418
  Serious: Yes (Hospitalization, Other)
  Sender: FDA-Public Use
  Company Number: NL-AMGEN-NLDSL2018048643

PATIENT
  Age: 54 Year
  Sex: Male

DRUGS (3)
  1. NPLATE [Suspect]
     Active Substance: ROMIPLOSTIM
     Dosage: 500 MCG, UNK
     Route: 058
  2. NPLATE [Suspect]
     Active Substance: ROMIPLOSTIM
     Indication: IMMUNE THROMBOCYTOPENIC PURPURA
     Dosage: 500 MCG, QWK
     Route: 058
  3. NPLATE [Suspect]
     Active Substance: ROMIPLOSTIM
     Dosage: UNK UNK, UNK
     Route: 058

REACTIONS (7)
  - Diarrhoea [Unknown]
  - Malaise [Unknown]
  - Platelet count increased [Recovering/Resolving]
  - Weight decreased [Unknown]
  - Dysstasia [Not Recovered/Not Resolved]
  - Fatigue [Not Recovered/Not Resolved]
  - Muscular weakness [Not Recovered/Not Resolved]

NARRATIVE: CASE EVENT DATE: 20180408
